FAERS Safety Report 8122244-8 (Version None)
Quarter: 2012Q1

REPORT INFORMATION
  Report Type: 
  Country: None (occurrence: None)
  Receive Date: 20120208
  Receipt Date: 20120131
  Transmission Date: 20120608
  Serious: Yes (Other)
  Sender: FDA-Public Use
  Company Number: US-BRISTOL-MYERS SQUIBB COMPANY-16376170

PATIENT
  Age: 67 Year
  Sex: Female

DRUGS (1)
  1. ERBITUX [Suspect]
     Dosage: STARTED 8 WEEKS AGO

REACTIONS (4)
  - RASH [None]
  - MAGNESIUM DEFICIENCY [None]
  - POST PROCEDURAL HAEMORRHAGE [None]
  - BLOOD POTASSIUM DECREASED [None]
